FAERS Safety Report 10362346 (Version 5)
Quarter: 2014Q4

REPORT INFORMATION
  Report Type: Spontaneous
  Country: US (occurrence: US)
  Receive Date: 20140805
  Receipt Date: 20141125
  Transmission Date: 20150528
  Serious: Yes (Hospitalization, Disabling, Other)
  Sender: FDA-Public Use
  Company Number: US-009507513-1408USA000936

PATIENT
  Sex: Male
  Weight: 141.5 kg

DRUGS (2)
  1. JANUMET [Suspect]
     Active Substance: METFORMIN HYDROCHLORIDE\SITAGLIPTIN PHOSPHATE
     Indication: TYPE 2 DIABETES MELLITUS
     Dosage: 50 MG/500 MG, BID
     Route: 048
     Dates: start: 20110810, end: 20120524
  2. JANUMET [Suspect]
     Active Substance: METFORMIN HYDROCHLORIDE\SITAGLIPTIN PHOSPHATE
     Dosage: 50 MG/ 1000 MG, BID
     Route: 048

REACTIONS (28)
  - Omentectomy [Unknown]
  - Night sweats [Unknown]
  - Pleural effusion [Unknown]
  - Pancreatic neuroendocrine tumour [Unknown]
  - Pancreatic leak [Unknown]
  - Pancreatic stent removal [Unknown]
  - Pancreatectomy [Unknown]
  - Superinfection [Unknown]
  - Psoriasis [Unknown]
  - Bronchial hyperreactivity [Unknown]
  - Atelectasis [Unknown]
  - Pancreatic neoplasm [Unknown]
  - Anticoagulation drug level below therapeutic [Unknown]
  - Blood creatinine increased [Recovering/Resolving]
  - Abdominal abscess [Unknown]
  - Pulmonary embolism [Unknown]
  - Pancreatitis chronic [Not Recovered/Not Resolved]
  - Blood triglycerides increased [Unknown]
  - Nausea [Unknown]
  - Splenectomy [Unknown]
  - Abscess drainage [Unknown]
  - Omental infarction [Unknown]
  - Blood cholesterol increased [Unknown]
  - Bronchitis [Unknown]
  - Gastrooesophageal reflux disease [Unknown]
  - Localised intraabdominal fluid collection [Unknown]
  - Pancreatic stent placement [Unknown]
  - Cholelithiasis [Unknown]

NARRATIVE: CASE EVENT DATE: 201206
